FAERS Safety Report 5112900-8 (Version None)
Quarter: 2006Q3

REPORT INFORMATION
  Report Type: 
  Country: None (occurrence: None)
  Receive Date: 20060922
  Receipt Date: 20060920
  Transmission Date: 20061208
  Serious: Yes (Death)
  Sender: FDA-Public Use
  Company Number: CH-JNJFOC-20060803955

PATIENT
  Age: 10 Decade
  Sex: Female

DRUGS (3)
  1. REMINYL [Suspect]
     Indication: DEMENTIA
     Route: 048
  2. DETRUSITOL [Concomitant]
     Indication: HYPERTONIC BLADDER
     Route: 048
  3. TARDYFERON [Concomitant]
     Indication: ANAEMIA
     Route: 048

REACTIONS (1)
  - DEATH [None]
